FAERS Safety Report 26172454 (Version 1)
Quarter: 2025Q4

REPORT INFORMATION
  Report Type: Spontaneous
  Country: US (occurrence: US)
  Receive Date: 20251218
  Receipt Date: 20251218
  Transmission Date: 20260117
  Serious: Yes (Hospitalization, Disabling)
  Sender: ACCORD
  Company Number: US-Accord-518067

PATIENT
  Age: 78 Year
  Sex: Female

DRUGS (9)
  1. HYDROCHLOROTHIAZIDE [Interacting]
     Active Substance: HYDROCHLOROTHIAZIDE
  2. SIMVASTATIN [Interacting]
     Active Substance: SIMVASTATIN
  3. EMPAGLIFLOZIN [Interacting]
     Active Substance: EMPAGLIFLOZIN
  4. CLOPIDOGREL [Concomitant]
     Active Substance: CLOPIDOGREL BISULFATE
     Dosage: SINCE LAST 10 YEARS
  5. IRON [Concomitant]
     Active Substance: IRON
     Indication: Iron deficiency
     Route: 048
  6. LEVOTHYROXINE [Concomitant]
     Active Substance: LEVOTHYROXINE
     Dosage: SINCE LAST 10 YEARS
  7. LISINOPRIL [Concomitant]
     Active Substance: LISINOPRIL
     Dosage: SINCE LAST 10 YEARS
  8. METFORMIN [Concomitant]
     Active Substance: METFORMIN HYDROCHLORIDE
     Dosage: SINCE LAST 10 YEARS
  9. VITAMIN B12 [Concomitant]
     Active Substance: CYANOCOBALAMIN
     Indication: Vitamin B12 deficiency
     Route: 048

REACTIONS (5)
  - Rhabdomyolysis [Recovering/Resolving]
  - Acute kidney injury [Recovering/Resolving]
  - Hypertransaminasaemia [Recovering/Resolving]
  - Troponin increased [Recovering/Resolving]
  - Drug interaction [Recovering/Resolving]
